FAERS Safety Report 6030054-0 (Version None)
Quarter: 2009Q1

REPORT INFORMATION
  Report Type: 
  Country: None (occurrence: None)
  Receive Date: 20090105
  Receipt Date: 20090105
  Transmission Date: 20090719
  Serious: No
  Sender: FDA-Public Use
  Company Number: None

PATIENT
  Sex: Male
  Weight: 101.36 kg

DRUGS (3)
  1. LISINOPRIL [Suspect]
     Dosage: 5MG TABLET 5 MG QD ORAL
     Dates: start: 20081110, end: 20090105
  2. ASPIRIN [Concomitant]
  3. SIMVASTATIN [Concomitant]

REACTIONS (1)
  - COUGH [None]
